FAERS Safety Report 8237022-9 (Version None)
Quarter: 2012Q1

REPORT INFORMATION
  Report Type: 
  Country: None (occurrence: None)
  Receive Date: 20120327
  Receipt Date: 20120321
  Transmission Date: 20120608
  Serious: Yes (Life-Threatening, Hospitalization, Other)
  Sender: FDA-Public Use
  Company Number: PHHY2011JP68022

PATIENT
  Age: 71 Year
  Sex: Male

DRUGS (11)
  1. METHYCOBAL [Concomitant]
     Route: 048
  2. HYDROCORTISONE SODIUM SUCCINATE [Concomitant]
     Route: 042
  3. TEGRETOL [Suspect]
     Indication: TRIGEMINAL NEURALGIA
     Dosage: 800 MG, DAILY
     Route: 048
     Dates: start: 20110428, end: 20110505
  4. FLIVAS [Concomitant]
     Route: 048
  5. LOXONIN [Concomitant]
     Route: 048
  6. ADENOSINE [Concomitant]
     Route: 048
  7. TEGRETOL [Suspect]
     Dosage: 1200 MG, DAILY
     Route: 048
     Dates: start: 20110506, end: 20110512
  8. MUCOSTA [Concomitant]
     Route: 048
  9. DOGMATYL [Concomitant]
     Route: 048
  10. LYRICA [Concomitant]
     Route: 048
     Dates: start: 20110511
  11. PAXIL [Concomitant]
     Route: 048

REACTIONS (8)
  - PYREXIA [None]
  - SALIVARY HYPERSECRETION [None]
  - PLATELET COUNT DECREASED [None]
  - DIZZINESS [None]
  - RASH [None]
  - THROMBOCYTOPENIA [None]
  - VIITH NERVE PARALYSIS [None]
  - VOMITING [None]
